FAERS Safety Report 21870419 (Version 1)
Quarter: 2023Q1

REPORT INFORMATION
  Report Type: Spontaneous
  Country: US (occurrence: US)
  Receive Date: 20230117
  Receipt Date: 20230117
  Transmission Date: 20230418
  Serious: Yes (Disabling, Other)
  Sender: FDA-Public Use
  Company Number: US-009507513-2301USA004372

PATIENT
  Age: 85 Year
  Sex: Male

DRUGS (2)
  1. KEYTRUDA [Suspect]
     Active Substance: PEMBROLIZUMAB
     Indication: Transitional cell carcinoma
     Dosage: UNK
  2. KEYTRUDA [Suspect]
     Active Substance: PEMBROLIZUMAB
     Indication: Metastatic neoplasm

REACTIONS (3)
  - Immune-mediated myositis [Recovering/Resolving]
  - Myasthenia gravis crisis [Recovering/Resolving]
  - Immune-mediated myocarditis [Recovering/Resolving]
